FAERS Safety Report 8624228-X (Version None)
Quarter: 2012Q3

REPORT INFORMATION
  Report Type: 
  Country: None (occurrence: None)
  Receive Date: 20120824
  Receipt Date: 20120824
  Transmission Date: 20120928
  Serious: Yes (Life-Threatening)
  Sender: FDA-Public Use
  Company Number: None

PATIENT
  Sex: Male
  Weight: 81.6475 kg

DRUGS (2)
  1. NUCYNTA [Suspect]
     Indication: HEADACHE
     Dosage: ONE Q 4 H PRN PAIN
     Dates: start: 20120531, end: 20120605
  2. CLONIDINE HYDROCHLORIDE [Concomitant]

REACTIONS (1)
  - CHEST DISCOMFORT [None]
